FAERS Safety Report 20761223 (Version 1)
Quarter: 2022Q2

REPORT INFORMATION
  Report Type: Spontaneous
  Country: FR (occurrence: FR)
  Receive Date: 20220428
  Receipt Date: 20220428
  Transmission Date: 20220721
  Serious: Yes (Other)
  Sender: FDA-Public Use
  Company Number: None

PATIENT
  Age: 95 Year
  Sex: Female
  Weight: 63 kg

DRUGS (8)
  1. FENOFIBRATE [Suspect]
     Active Substance: FENOFIBRATE
     Indication: Product used for unknown indication
     Dosage: UNIT DOSE: 160 MG, FREQUENCY TIME : 1 DAY, DURATION : 94 DAYS
     Route: 048
     Dates: start: 20211113, end: 20220215
  2. BISOPROLOL FUMARATE [Suspect]
     Active Substance: BISOPROLOL FUMARATE
     Indication: Product used for unknown indication
     Dosage: BISOPROLOL (FUMARATE ACIDE DE), UNIT DOSE: 5 MG, FREQUENCY TIME : 1 DAY
     Route: 048
     Dates: start: 20211222
  3. FUROSEMIDE [Suspect]
     Active Substance: FUROSEMIDE
     Indication: Product used for unknown indication
     Dosage: UNIT DOSE: 40 MG, FREQUENCY TIME : 1 DAY
     Route: 048
     Dates: start: 20211222
  4. POLYETHYLENE GLYCOL 4000 [Suspect]
     Active Substance: POLYETHYLENE GLYCOL 4000
     Indication: Product used for unknown indication
     Dosage: UNIT DOSE: 1 DF, FREQUENCY TIME : 1 DAY
     Route: 048
     Dates: start: 20211109
  5. KARDEGIC [Suspect]
     Active Substance: ASPIRIN DL-LYSINE
     Indication: Product used for unknown indication
     Dosage: UNIT DOSE: 1 DF, FREQUENCY TIME :1 DAY, POWDER FOR ORAL SOLUTION IN SACHET-DOSE, STRENGTH: 75 MG
     Route: 048
     Dates: start: 20211109
  6. POTASSIUM CHLORIDE [Suspect]
     Active Substance: POTASSIUM CHLORIDE
     Indication: Product used for unknown indication
     Dosage: UNIT DOSE: 6 DF, FREQUENCY TIME : 1 DAY
     Route: 048
     Dates: start: 20211109
  7. DAPAGLIFLOZIN [Suspect]
     Active Substance: DAPAGLIFLOZIN
     Indication: Product used for unknown indication
     Dosage: 10MG ONCE A DAY, 1 DF, STRENGTH: 10 MG
     Route: 048
     Dates: start: 20220113
  8. URAPIDIL [Suspect]
     Active Substance: URAPIDIL
     Indication: Product used for unknown indication
     Dosage: UNIT DOSE: 2 DF, STRENGTH: 60 MG, FREQUENCY TIME : 1 DAY
     Route: 048
     Dates: start: 20211109

REACTIONS (2)
  - Hallucination [Not Recovered/Not Resolved]
  - Confusional state [Not Recovered/Not Resolved]

NARRATIVE: CASE EVENT DATE: 20220209
